FAERS Safety Report 23276202 (Version 2)
Quarter: 2023Q4

REPORT INFORMATION
  Report Type: Spontaneous
  Country: GB (occurrence: GB)
  Receive Date: 20231208
  Receipt Date: 20231219
  Transmission Date: 20240110
  Serious: Yes (Other)
  Sender: FDA-Public Use
  Company Number: GB-MYLANLABS-2023M1129239

PATIENT
  Sex: Female

DRUGS (1)
  1. CLOZARIL [Suspect]
     Active Substance: CLOZAPINE
     Indication: Product used for unknown indication
     Dosage: UNK
     Route: 048
     Dates: start: 20220622

REACTIONS (4)
  - Neuroleptic malignant syndrome [Unknown]
  - Dystonia [Unknown]
  - Psychotic disorder [Unknown]
  - Blood creatine phosphokinase increased [Unknown]
